FAERS Safety Report 6504570-9 (Version None)
Quarter: 2009Q4

REPORT INFORMATION
  Report Type: 
  Country: None (occurrence: None)
  Receive Date: 20091215
  Receipt Date: 20091130
  Transmission Date: 20100525
  Serious: Yes (Other)
  Sender: FDA-Public Use
  Company Number: 2009EK003938

PATIENT
  Age: 47 Year
  Sex: Male

DRUGS (3)
  1. CARDENE [Suspect]
     Indication: DRUG USE FOR UNKNOWN INDICATION
     Dates: start: 20091024
  2. CLEVIPREX [Suspect]
     Indication: PROCEDURAL HYPERTENSION
     Dosage: 32 MG; QH; IV
     Route: 042
     Dates: start: 20091024, end: 20091024
  3. PARALYZING AGENT [Suspect]
     Indication: DRUG USE FOR UNKNOWN INDICATION
     Dates: start: 20091024

REACTIONS (3)
  - HYPOTENSION [None]
  - OXYGEN SATURATION DECREASED [None]
  - SHUNT BLOOD FLOW EXCESSIVE [None]
